FAERS Safety Report 6085587-8 (Version None)
Quarter: 2009Q1

REPORT INFORMATION
  Report Type: 
  Country: None (occurrence: None)
  Receive Date: 20090220
  Receipt Date: 20090209
  Transmission Date: 20090719
  Serious: Yes (Other)
  Sender: FDA-Public Use
  Company Number: PT-JNJFOC-20090106869

PATIENT
  Age: 17 Year
  Sex: Male

DRUGS (5)
  1. REMICADE [Suspect]
     Dosage: DOSE INCREASED FROM 2 VIALS TO 3 VIALS FOR 2 INFUSIONS, 4 WEEKS BETWEEN INFUSIONS
     Route: 042
  2. REMICADE [Suspect]
     Dosage: DOSE INCREASED FROM 2 VIALS TO 3 VIALS FOR 2 INFUSIONS,
     Route: 042
  3. REMICADE [Suspect]
     Dosage: DOSE INCREASED FROM 2 VIALS TO 3 VIALS FOR 2 INFUSIONS,
     Route: 042
  4. REMICADE [Suspect]
     Indication: CROHN'S DISEASE
     Dosage: SINCE AGE 14 OR 15
     Route: 042
  5. AZATHIOPRINE [Concomitant]
     Indication: CROHN'S DISEASE

REACTIONS (2)
  - ALOPECIA [None]
  - FISTULA [None]
